FAERS Safety Report 6018997-5 (Version None)
Quarter: 2008Q4

REPORT INFORMATION
  Report Type: 
  Country: None (occurrence: None)
  Receive Date: 20081224
  Receipt Date: 20081217
  Transmission Date: 20090506
  Serious: Yes (Hospitalization)
  Sender: FDA-Public Use
  Company Number: JP-BRISTOL-MYERS SQUIBB COMPANY-14431001

PATIENT
  Age: 72 Year
  Sex: Male
  Weight: 69 kg

DRUGS (7)
  1. ERBITUX [Suspect]
     Indication: RECTAL CANCER
     Dosage: 250MG/M2.(1 IN 1 WK) IV DRIP,04NOV08-ONGOING. 3RD INFUSION=11NOV08.4TH INF=18NOV08
     Route: 041
     Dates: start: 20081028, end: 20081028
  2. CAMPTOSAR [Suspect]
     Indication: RECTAL CANCER
     Route: 041
     Dates: start: 20081030
  3. FLUOROURACIL [Concomitant]
     Indication: RECTAL CANCER
  4. RESTAMIN [Concomitant]
     Indication: PREMEDICATION
     Dosage: 5 TABS
     Route: 048
  5. DECADRON [Concomitant]
     Indication: PREMEDICATION
     Route: 042
  6. FENTANYL CITRATE [Concomitant]
     Dosage: PATCH
  7. OXINORM [Concomitant]
     Route: 048

REACTIONS (1)
  - DISORIENTATION [None]
